FAERS Safety Report 7906956-4 (Version None)
Quarter: 2011Q4

REPORT INFORMATION
  Report Type: 
  Country: None (occurrence: None)
  Receive Date: 20111110
  Receipt Date: 20110919
  Transmission Date: 20120403
  Serious: No
  Sender: FDA-Public Use
  Company Number: US-COVIDIEN/TYCO HEALTHCARE/MALLINCKRODT-T201101926

PATIENT
  Age: 45 Year
  Sex: Male

DRUGS (3)
  1. TRAMADOL HCL [Concomitant]
     Indication: PAIN
     Dosage: 50 MG, QOD
  2. PENNSAID [Suspect]
     Indication: ARTHRALGIA
     Dosage: 40 DROPS QID
     Dates: start: 20110801
  3. PENNSAID [Suspect]
     Dosage: 40 DROPS, QD
     Route: 061

REACTIONS (4)
  - SKIN EXFOLIATION [None]
  - PRURITUS [None]
  - INAPPROPRIATE SCHEDULE OF DRUG ADMINISTRATION [None]
  - RASH MACULAR [None]
